FAERS Safety Report 12507331 (Version 1)
Quarter: 2016Q2

REPORT INFORMATION
  Report Type: Report from Study
  Country: US (occurrence: US)
  Receive Date: 20160629
  Receipt Date: 20160629
  Transmission Date: 20160815
  Serious: Yes (Other)
  Sender: FDA-Public Use
  Company Number: US-ROCHE-1781348

PATIENT

DRUGS (1)
  1. BEVACIZUMAB [Suspect]
     Active Substance: BEVACIZUMAB
     Indication: DIABETIC RETINAL OEDEMA
     Dosage: 1.25 MG IN 0.05 ML
     Route: 050

REACTIONS (5)
  - Bradycardia [Unknown]
  - Vitreous haemorrhage [Unknown]
  - Colon cancer [Unknown]
  - VIth nerve paralysis [Unknown]
  - Pneumonia [Unknown]
